FAERS Safety Report 16863577 (Version 2)
Quarter: 2019Q4

REPORT INFORMATION
  Report Type: Spontaneous
  Country: DE (occurrence: DE)
  Receive Date: 20190927
  Receipt Date: 20191126
  Transmission Date: 20200122
  Serious: Yes (Other)
  Sender: FDA-Public Use
  Company Number: DE-GILEAD-2019-0415169

PATIENT
  Age: 60 Year

DRUGS (1)
  1. YESCARTA [Suspect]
     Active Substance: AXICABTAGENE CILOLEUCEL
     Indication: PRODUCT USED FOR UNKNOWN INDICATION
     Dosage: UNK
     Route: 042
     Dates: start: 20190326, end: 20190326

REACTIONS (5)
  - Bone marrow failure [Recovered/Resolved]
  - Cytokine storm [Recovered/Resolved]
  - Therapy non-responder [Unknown]
  - Cytokine release syndrome [Unknown]
  - Neurotoxicity [Recovered/Resolved]

NARRATIVE: CASE EVENT DATE: 20190326
